FAERS Safety Report 16286960 (Version 7)
Quarter: 2021Q3

REPORT INFORMATION
  Report Type: Spontaneous
  Country: US (occurrence: US)
  Receive Date: 20190508
  Receipt Date: 20210730
  Transmission Date: 20211014
  Serious: Yes (Other)
  Sender: FDA-Public Use
  Company Number: US-PFIZER INC-2019189828

PATIENT
  Age: 75 Year
  Sex: Male
  Weight: 106.59 kg

DRUGS (1)
  1. XELJANZ XR [Suspect]
     Active Substance: TOFACITINIB CITRATE
     Indication: RHEUMATOID ARTHRITIS
     Dosage: 11 MG, ONCE DAILY
     Route: 048

REACTIONS (5)
  - Bone disorder [Unknown]
  - Constipation [Unknown]
  - Reading disorder [Unknown]
  - Hypoacusis [Unknown]
  - Calcium deficiency [Not Recovered/Not Resolved]
